FAERS Safety Report 4567323-7 (Version None)
Quarter: 2005Q1

REPORT INFORMATION
  Report Type: 
  Country: None (occurrence: None)
  Receive Date: 20050127
  Receipt Date: 20050115
  Transmission Date: 20050727
  Serious: Yes (Other)
  Sender: FDA-Public Use
  Company Number: 2004099089

PATIENT
  Age: 74 Year
  Sex: Female

DRUGS (8)
  1. NEURONTIN [Suspect]
     Indication: SYNCOPE
     Dosage: 500 MG (100 MG, 5 IN 1 D)  ORAL
     Route: 048
     Dates: start: 20020131, end: 20041012
  2. METOPROLOL SUCCINATE [Concomitant]
  3. CONJUGATED ESTROGENS [Concomitant]
  4. LEVOTHYROXINE SODIUM [Concomitant]
  5. HYDROCHLOROTHIAZIDE [Concomitant]
  6. WARFARIN SODIUM [Concomitant]
  7. DIAZEPAM [Concomitant]
  8. OLMESARTAN MEDOXOMIL [Concomitant]

REACTIONS (12)
  - BURNING SENSATION [None]
  - CHAPPED LIPS [None]
  - CHEILITIS [None]
  - GLOSSITIS [None]
  - GLOSSODYNIA [None]
  - HYPERKERATOSIS [None]
  - LIP EXFOLIATION [None]
  - ORAL PAIN [None]
  - PHARYNGOLARYNGEAL PAIN [None]
  - STOMATITIS [None]
  - THROAT IRRITATION [None]
  - TONGUE EXFOLIATION [None]
